FAERS Safety Report 20881579 (Version 1)
Quarter: 2022Q2

REPORT INFORMATION
  Report Type: Spontaneous
  Country: CN (occurrence: CN)
  Receive Date: 20220527
  Receipt Date: 20220527
  Transmission Date: 20220720
  Serious: Yes (Other)
  Sender: FDA-Public Use
  Company Number: CN-SUN PHARMACEUTICAL INDUSTRIES LTD-2022R1-338118

PATIENT
  Age: 38 Year
  Sex: Male

DRUGS (5)
  1. BORTEZOMIB [Suspect]
     Active Substance: BORTEZOMIB
     Indication: Immunochemotherapy
     Dosage: UNK
     Route: 065
     Dates: start: 20190719, end: 20190809
  2. DEXAMETHASONE [Suspect]
     Active Substance: DEXAMETHASONE
     Indication: Immunochemotherapy
     Dosage: UNK
     Route: 065
     Dates: start: 20190719, end: 20190809
  3. TUCIDINOSTAT [Suspect]
     Active Substance: TUCIDINOSTAT
     Indication: Immunochemotherapy
     Dosage: UNK
     Route: 065
     Dates: start: 20190719, end: 20190809
  4. RITUXIMAB [Suspect]
     Active Substance: RITUXIMAB
     Indication: Immunochemotherapy
     Dosage: UNK
     Route: 065
     Dates: start: 20190719, end: 20190809
  5. SINTILIMAB [Suspect]
     Active Substance: SINTILIMAB
     Indication: Neoplasm progression
     Dosage: UNK
     Route: 065
     Dates: start: 20190719, end: 20190809

REACTIONS (1)
  - Disease progression [Unknown]
